FAERS Safety Report 22923207 (Version 6)
Quarter: 2024Q4

REPORT INFORMATION
  Report Type: Report from Study
  Country: CA (occurrence: CA)
  Receive Date: 20230908
  Receipt Date: 20241127
  Transmission Date: 20250114
  Serious: No
  Sender: ROCHE
  Company Number: CA-ROCHE-2959817

PATIENT
  Age: 40 Year
  Sex: Female

DRUGS (3)
  1. OCREVUS [Suspect]
     Active Substance: OCRELIZUMAB
     Indication: Relapsing-remitting multiple sclerosis
     Dosage: 300 MG AT DAY 0 AND 14, THEN 600 MG EVERY 5 MONTH
     Route: 042
     Dates: start: 20210721
  2. OMEGA OILS [Concomitant]
  3. DALFAMPRIDINE [Concomitant]
     Active Substance: DALFAMPRIDINE

REACTIONS (6)
  - Feeling cold [Recovering/Resolving]
  - Insomnia [Not Recovered/Not Resolved]
  - White blood cell count increased [Unknown]
  - Off label use [Unknown]
  - Oral herpes [Recovered/Resolved]
  - White blood cell count decreased [Unknown]

NARRATIVE: CASE EVENT DATE: 20211117
